FAERS Safety Report 7996636-1 (Version None)
Quarter: 2011Q4

REPORT INFORMATION
  Report Type: 
  Country: None (occurrence: None)
  Receive Date: 20111216
  Receipt Date: 20111205
  Transmission Date: 20120403
  Serious: Yes (Other)
  Sender: FDA-Public Use
  Company Number: 2011MA017314

PATIENT
  Age: 87 Year
  Sex: Female

DRUGS (4)
  1. HYDROXYZINE [Suspect]
     Indication: RASH
     Dosage: PO
     Route: 048
  2. TACROLIMUS [Suspect]
     Indication: RASH
     Dosage: TOP
     Route: 061
  3. HYDROCORTISONE 0.5% CREAM [Suspect]
     Indication: RASH
     Dosage: TOP
     Route: 061
  4. KETOCONAZOLE [Suspect]
     Indication: RASH
     Dosage: TOP
     Route: 061

REACTIONS (3)
  - NO THERAPEUTIC RESPONSE [None]
  - CONDITION AGGRAVATED [None]
  - LINEAR IGA DISEASE [None]
